FAERS Safety Report 12882160 (Version 2)
Quarter: 2016Q4

REPORT INFORMATION
  Report Type: Spontaneous
  Country: FR (occurrence: FR)
  Receive Date: 20161025
  Receipt Date: 20161123
  Transmission Date: 20170207
  Serious: Yes (Other)
  Sender: FDA-Public Use
  Company Number: FR-JNJFOC-20161020719

PATIENT
  Age: 85 Year
  Sex: Female
  Weight: 60 kg

DRUGS (8)
  1. HELICIDINE [Concomitant]
     Active Substance: ESCARGOT
     Route: 065
     Dates: start: 2010
  2. IMBRUVICA [Suspect]
     Active Substance: IBRUTINIB
     Indication: CHRONIC LYMPHOCYTIC LEUKAEMIA
     Route: 048
     Dates: start: 20160705, end: 20161021
  3. DOLIPRANE [Concomitant]
     Active Substance: ACETAMINOPHEN
     Route: 065
     Dates: start: 2010
  4. ALLOPURINOL. [Concomitant]
     Active Substance: ALLOPURINOL
     Route: 065
     Dates: start: 2010
  5. PASSIFLORA COMPLEX [Concomitant]
     Dosage: 10 GRANULES/DAY
     Route: 065
     Dates: start: 20160708
  6. NOCTAMIDE [Concomitant]
     Active Substance: LORMETAZEPAM
     Route: 065
     Dates: start: 2010
  7. LEXOMIL [Concomitant]
     Active Substance: BROMAZEPAM
     Route: 065
     Dates: start: 2010
  8. STRYCHNOS NUX-VOMICA [Concomitant]
     Dosage: 3 GRANULES
     Route: 065
     Dates: start: 20160708

REACTIONS (6)
  - Off label use [Unknown]
  - Muscle spasms [Recovering/Resolving]
  - Incorrect dose administered [Unknown]
  - Ecchymosis [Recovered/Resolved]
  - Haematoma [Recovered/Resolved]
  - Asthenia [Not Recovered/Not Resolved]

NARRATIVE: CASE EVENT DATE: 20160705
